FAERS Safety Report 9529535 (Version 1)
Quarter: 2013Q3

REPORT INFORMATION
  Report Type: Spontaneous
  Country: US (occurrence: US)
  Receive Date: 20130917
  Receipt Date: 20130917
  Transmission Date: 20140515
  Serious: Yes (Hospitalization)
  Sender: FDA-Public Use
  Company Number: PHEH2013US019296

PATIENT
  Age: 53 Year
  Sex: Male

DRUGS (1)
  1. CLOZARIL [Suspect]
     Dosage: UNK

REACTIONS (9)
  - Septic shock [Recovered/Resolved]
  - Fall [Recovered/Resolved]
  - Respiratory disorder [Recovered/Resolved]
  - Pneumonia aspiration [Recovered/Resolved]
  - Escherichia infection [Unknown]
  - Enterobacter pneumonia [Recovered/Resolved]
  - Renal failure [Recovered/Resolved]
  - Metabolic acidosis [Recovered/Resolved]
  - White blood cell count increased [Recovered/Resolved]
